FAERS Safety Report 24981449 (Version 1)
Quarter: 2025Q1

REPORT INFORMATION
  Report Type: Spontaneous
  Country: RO (occurrence: RO)
  Receive Date: 20250218
  Receipt Date: 20250218
  Transmission Date: 20250408
  Serious: Yes (Other)
  Sender: FERRING
  Company Number: RO-MLMSERVICE-20250203-PI390755-00272-1

PATIENT

DRUGS (1)
  1. PROGESTERONE [Suspect]
     Active Substance: PROGESTERONE
     Indication: Uterine haemorrhage
     Route: 065

REACTIONS (3)
  - Cholelithiasis [Recovered/Resolved]
  - Maternal exposure during pregnancy [Recovered/Resolved]
  - Product use in unapproved indication [Recovered/Resolved]
